FAERS Safety Report 24133902 (Version 1)
Quarter: 2024Q3

REPORT INFORMATION
  Report Type: Spontaneous
  Country: US (occurrence: US)
  Receive Date: 20240724
  Receipt Date: 20240724
  Transmission Date: 20241016
  Serious: No
  Sender: BRISTOL MYERS SQUIBB
  Company Number: US-BRISTOL-MYERS SQUIBB COMPANY-2024-116300

PATIENT
  Age: 78 Year
  Sex: Male

DRUGS (1)
  1. THALOMID [Suspect]
     Active Substance: THALIDOMIDE
     Indication: Myeloproliferative neoplasm
     Dosage: EVERY NIGHT
     Route: 048

REACTIONS (2)
  - Thinking abnormal [Unknown]
  - Off label use [Unknown]
